FAERS Safety Report 6438381-X (Version None)
Quarter: 2009Q4

REPORT INFORMATION
  Report Type: 
  Country: None (occurrence: None)
  Receive Date: 20091112
  Receipt Date: 20091104
  Transmission Date: 20100525
  Serious: Yes (Other)
  Sender: FDA-Public Use
  Company Number: CH-SANOFI-AVENTIS-2009SA000549

PATIENT
  Age: 19 Year
  Sex: Female

DRUGS (6)
  1. CLOPIDOGREL BISULFATE [Suspect]
     Route: 048
     Dates: start: 20090216
  2. CORONARY VASODILATORS [Suspect]
     Route: 065
     Dates: start: 20090216, end: 20091005
  3. BELOC ZOK [Suspect]
     Route: 065
     Dates: start: 20090216
  4. ZESTRIL [Suspect]
     Route: 065
     Dates: start: 20090216, end: 20091005
  5. ASPIRIN [Suspect]
     Route: 065
     Dates: start: 20090216
  6. SORTIS ^PARKE DAVIS^ [Suspect]
     Route: 065
     Dates: start: 20090216, end: 20091005

REACTIONS (1)
  - DRUG EXPOSURE DURING PREGNANCY [None]
